FAERS Safety Report 21912625 (Version 1)
Quarter: 2023Q1

REPORT INFORMATION
  Report Type: Spontaneous
  Country: US (occurrence: US)
  Receive Date: 20230125
  Receipt Date: 20230125
  Transmission Date: 20230418
  Serious: No
  Sender: FDA-Public Use
  Company Number: US-ALLERGAN-2235919US

PATIENT
  Age: 67 Year
  Sex: Female
  Weight: 74 kg

DRUGS (15)
  1. BOTOX [Suspect]
     Active Substance: ONABOTULINUMTOXINA
     Indication: Oesophageal stenosis
     Dosage: UNK, SINGLE
     Dates: start: 20220916, end: 20220916
  2. LEVALBUTEROL HYDROCHLORIDE [Concomitant]
     Active Substance: LEVALBUTEROL HYDROCHLORIDE
     Dosage: UNK, BID
  3. Tubular inhaler [Concomitant]
     Dosage: 40 ?G, BID
  4. obrio [Concomitant]
     Dosage: 200 ?G, QD
  5. XOPENEX HFA [Concomitant]
     Active Substance: LEVALBUTEROL TARTRATE
     Dosage: UNK
  6. BRIMONIDINE [Concomitant]
     Active Substance: BRIMONIDINE TARTRATE
     Dosage: 1 GTT, BID
  7. TIMOLOL [Concomitant]
     Active Substance: TIMOLOL
     Dosage: 1 GTT, QD
  8. IPRATROPIUM BROMIDE [Concomitant]
     Active Substance: IPRATROPIUM BROMIDE
     Dosage: UNK, BID
  9. MOMETASONE FUROATE [Concomitant]
     Active Substance: MOMETASONE FUROATE
     Dosage: 1 DF, QAM
  10. FLEXERIL [Concomitant]
     Active Substance: CYCLOBENZAPRINE HYDROCHLORIDE
     Dosage: 10 MG, TID
  11. CROMOLYN SODIUM [Concomitant]
     Active Substance: CROMOLYN SODIUM
     Dosage: 100 MG, TID
  12. BENADRYL [Concomitant]
     Active Substance: DIPHENHYDRAMINE HYDROCHLORIDE
     Dosage: 50 MG
  13. PREDNISOLONE [Concomitant]
     Active Substance: PREDNISOLONE
     Indication: Hypersensitivity
     Dosage: 15 MG
  14. LEVOCETIRIZINE [Concomitant]
     Active Substance: LEVOCETIRIZINE
     Dosage: 10 DF, QHS
  15. CIMETIDINE [Concomitant]
     Active Substance: CIMETIDINE
     Indication: Gastrooesophageal reflux disease
     Dosage: UNK, BID

REACTIONS (7)
  - Off label use [Unknown]
  - Gastrooesophageal reflux disease [Not Recovered/Not Resolved]
  - Eructation [Not Recovered/Not Resolved]
  - Feeling abnormal [Unknown]
  - Bowel movement irregularity [Not Recovered/Not Resolved]
  - Vomiting [Unknown]
  - Condition aggravated [Unknown]

NARRATIVE: CASE EVENT DATE: 20220901
